FAERS Safety Report 4849357-8 (Version None)
Quarter: 2005Q4

REPORT INFORMATION
  Report Type: 
  Country: None (occurrence: None)
  Receive Date: 20051207
  Receipt Date: 20051203
  Transmission Date: 20060501
  Serious: Yes (Hospitalization)
  Sender: FDA-Public Use
  Company Number: 217324

PATIENT
  Age: 50 Year
  Sex: Female
  Weight: 73.5 kg

DRUGS (9)
  1. AVASTIN [Suspect]
     Indication: BREAST CANCER METASTATIC
     Dosage: 15 MG/KG, Q3W, INTRAVENOUS
     Route: 042
     Dates: start: 20050805
  2. CAPECITABINE (CAPECITABINE) [Suspect]
     Indication: BREAST CANCER METASTATIC
     Dosage: 825 MG/M2, BID, ORAL
     Route: 048
     Dates: start: 20050805
  3. DOCETAXEL (DOCETAXEL) [Suspect]
     Indication: BREAST CANCER METASTATIC
     Dosage: 75 MG/M2, Q3W, INTRAVENOUS
     Route: 042
     Dates: start: 20050805
  4. ALEVE [Concomitant]
  5. AREDIA [Concomitant]
  6. ARIMIDEX [Concomitant]
  7. RESTORIL [Concomitant]
  8. WELLBUTRIN [Concomitant]
  9. XANAX [Concomitant]

REACTIONS (1)
  - FEBRILE NEUTROPENIA [None]
